FAERS Safety Report 9255815 (Version 1)
Quarter: 2013Q2

REPORT INFORMATION
  Report Type: Spontaneous
  Country: US (occurrence: US)
  Receive Date: 20130425
  Receipt Date: 20130425
  Transmission Date: 20140414
  Serious: No
  Sender: FDA-Public Use
  Company Number: US-ASTRAZENECA-2013SE24089

PATIENT
  Age: 76 Year
  Sex: Female
  Weight: 61.2 kg

DRUGS (16)
  1. SYMBICORT [Suspect]
     Indication: CHRONIC OBSTRUCTIVE PULMONARY DISEASE
     Dosage: 160/4.5 MCG, 2 PUFFS  BID
     Route: 055
     Dates: start: 20120202
  2. OMEPRAZOLE [Suspect]
     Indication: GASTROOESOPHAGEAL REFLUX DISEASE
     Route: 048
     Dates: start: 2009
  3. PROAIR [Suspect]
     Route: 065
  4. LASIX [Concomitant]
     Indication: SWELLING
     Route: 048
     Dates: start: 201209
  5. ISOSORBIDE [Concomitant]
     Indication: BLOOD PRESSURE
     Dosage: 30MG IF BLOOD PRESSU DAILY
     Route: 048
  6. RITE AID PROBIOTICS [Concomitant]
     Indication: GASTRIC DISORDER
     Dosage: DAILY
     Route: 048
  7. KROGER FIBER [Concomitant]
     Indication: ABDOMINAL DISCOMFORT
     Dosage: 1 HEAPING TEASPOON I DAILY
     Route: 048
  8. XOPENEX [Concomitant]
     Indication: CHRONIC OBSTRUCTIVE PULMONARY DISEASE
     Dosage: PRN
     Route: 055
  9. MIRALAX [Concomitant]
     Indication: DIVERTICULUM
     Dosage: DAILY
     Route: 048
  10. ZYRTEC [Concomitant]
     Indication: EAR INFECTION
     Route: 048
     Dates: start: 201112
  11. BUPROPION [Concomitant]
     Indication: NERVOUSNESS
     Route: 048
     Dates: start: 201301
  12. MECLIZINE [Concomitant]
     Indication: SINUSITIS
     Route: 048
     Dates: start: 201112
  13. ZOFRAN [Concomitant]
     Indication: NAUSEA
     Route: 048
  14. HYDROXAZINE [Concomitant]
     Indication: PRURITUS
     Route: 048
  15. TRAMADOL [Concomitant]
     Indication: ARTHRALGIA
     Route: 048
     Dates: start: 2011
  16. TYLENOL [Concomitant]
     Indication: ARTHRALGIA
     Route: 048
     Dates: start: 2011

REACTIONS (6)
  - Nervousness [Recovered/Resolved]
  - Tremor [Recovered/Resolved]
  - Joint swelling [Unknown]
  - Local swelling [Unknown]
  - Chronic obstructive pulmonary disease [Unknown]
  - Incorrect dose administered [Unknown]
